FAERS Safety Report 7839455-9 (Version None)
Quarter: 2011Q4

REPORT INFORMATION
  Report Type: 
  Country: None (occurrence: None)
  Receive Date: 20111025
  Receipt Date: 20111012
  Transmission Date: 20120403
  Serious: Yes (Other)
  Sender: FDA-Public Use
  Company Number: JP-RANBAXY-2011RR-49719

PATIENT
  Sex: Male

DRUGS (3)
  1. ASPIRIN [Suspect]
     Dosage: 100 MG, UNK
     Route: 065
  2. ASPIRIN [Suspect]
     Indication: ALLERGY TEST
     Dosage: 500 MG
     Route: 065
  3. IBUPROFEN [Suspect]
     Indication: HEADACHE
     Dosage: UNK
     Route: 065

REACTIONS (2)
  - REACTION TO FOOD ADDITIVE [None]
  - ANAPHYLACTIC REACTION [None]
